FAERS Safety Report 8245131-3 (Version None)
Quarter: 2012Q1

REPORT INFORMATION
  Report Type: 
  Country: None (occurrence: None)
  Receive Date: 20120329
  Receipt Date: 20120328
  Transmission Date: 20120608
  Serious: Yes (Other)
  Sender: FDA-Public Use
  Company Number: US-GLAXOSMITHKLINE-A0965258A

PATIENT
  Age: 43 Year
  Sex: Female

DRUGS (4)
  1. THYROID MEDICATION [Concomitant]
  2. BLOOD PRESSURE MEDICATION [Concomitant]
  3. ALLI [Suspect]
     Indication: WEIGHT LOSS DIET
     Route: 048
     Dates: start: 20120101, end: 20120201
  4. ANTIDEPRESSANT (UNSPECIFIED) [Concomitant]

REACTIONS (1)
  - RECTAL HAEMORRHAGE [None]
